FAERS Safety Report 10573481 (Version 2)
Quarter: 2015Q2

REPORT INFORMATION
  Report Type: Report from Study
  Country: TR (occurrence: TR)
  Receive Date: 20141110
  Receipt Date: 20150529
  Transmission Date: 20150821
  Serious: Yes (Hospitalization)
  Sender: FDA-Public Use
  Company Number: TR-NOVOPROD-427868

PATIENT
  Sex: Female
  Weight: 4.35 kg

DRUGS (3)
  1. INSULATARD NPH HUMAN [Suspect]
     Active Substance: INSULIN HUMAN
     Indication: GESTATIONAL DIABETES
     Dosage: 4 U, QD
     Route: 064
     Dates: start: 20140703, end: 20140704
  2. LANTUS [Concomitant]
     Active Substance: INSULIN GLARGINE
     Indication: GESTATIONAL DIABETES
     Dosage: 10 U, QD
     Route: 064
     Dates: start: 20140704, end: 20140716
  3. NOVORAPID [Suspect]
     Active Substance: INSULIN ASPART
     Indication: GESTATIONAL DIABETES
     Dosage: 18 U, QD
     Route: 064
     Dates: start: 20140702, end: 20140716

REACTIONS (4)
  - Foetal exposure during pregnancy [Recovered/Resolved]
  - Thyroid hormones increased [Recovered/Resolved]
  - Premature baby [Unknown]
  - Hypoglycaemia neonatal [Recovered/Resolved]

NARRATIVE: CASE EVENT DATE: 201407
